FAERS Safety Report 25606298 (Version 1)
Quarter: 2025Q3

REPORT INFORMATION
  Report Type: Spontaneous
  Country: US (occurrence: None)
  Receive Date: 20250724
  Receipt Date: 20250724
  Transmission Date: 20251021
  Serious: Yes (Hospitalization)
  Sender: FDA-CTU
  Company Number: None

PATIENT
  Age: 63 Year
  Sex: Female
  Weight: 72.3 kg

DRUGS (20)
  1. CYLTEZO [Suspect]
     Active Substance: ADALIMUMAB-ADBM
     Indication: Rheumatoid arthritis
     Dosage: 40 MG EVERY 14 DAYS SUBCUTANEOUS?
     Route: 058
     Dates: start: 20250529, end: 20250719
  2. AMLODIPINE [Concomitant]
     Active Substance: AMLODIPINE BESYLATE
  3. ASPIRIN [Concomitant]
     Active Substance: ASPIRIN
  4. ATENOLOL [Concomitant]
     Active Substance: ATENOLOL
  5. CLOPIDOGREL [Concomitant]
     Active Substance: CLOPIDOGREL BISULFATE
  6. CYCLOBENZAPRINE [Concomitant]
     Active Substance: CYCLOBENZAPRINE
  7. GABAPENTIN [Concomitant]
     Active Substance: GABAPENTIN
  8. HYDROCHLOROTHIAZIDE [Concomitant]
     Active Substance: HYDROCHLOROTHIAZIDE
  9. LEFLUNOMIDE [Concomitant]
     Active Substance: LEFLUNOMIDE
  10. LETROZOLE [Concomitant]
     Active Substance: LETROZOLE
  11. LORATADINE [Concomitant]
     Active Substance: LORATADINE
  12. OMEPRAZOLE [Concomitant]
     Active Substance: OMEPRAZOLE
  13. potassium er [Concomitant]
  14. FUROSEMIDE [Concomitant]
     Active Substance: FUROSEMIDE
  15. ATORVASTATIN [Concomitant]
     Active Substance: ATORVASTATIN
  16. CYLTEZO [Concomitant]
     Active Substance: ADALIMUMAB-ADBM
  17. ESTRADIOL [Concomitant]
     Active Substance: ESTRADIOL
  18. HUMIRA [Concomitant]
     Active Substance: ADALIMUMAB
  19. HYDROXYCHLOROQUINE [Concomitant]
     Active Substance: HYDROXYCHLOROQUINE
  20. CLONIDINE [Suspect]
     Active Substance: CLONIDINE

REACTIONS (7)
  - Acute respiratory failure [None]
  - Cellulitis [None]
  - Wheezing [None]
  - Anaphylactic reaction [None]
  - Hypersensitivity [None]
  - Wound infection [None]
  - Peripheral venous disease [None]

NARRATIVE: CASE EVENT DATE: 20250718
